FAERS Safety Report 7114491-9 (Version None)
Quarter: 2010Q4

REPORT INFORMATION
  Report Type: 
  Country: None (occurrence: None)
  Receive Date: 20101119
  Receipt Date: 20101113
  Transmission Date: 20110411
  Serious: Yes (Other)
  Sender: FDA-Public Use
  Company Number: US-RB-015666-10

PATIENT
  Age: 49 Year
  Sex: Female

DRUGS (1)
  1. SUBOXONE [Suspect]
     Indication: PRODUCT USED FOR UNKNOWN INDICATION
     Dosage: DOSING INFORMATION UNKNOWN.
     Route: 065

REACTIONS (17)
  - ASTHENIA [None]
  - BACK PAIN [None]
  - CONSTIPATION [None]
  - CONVULSION [None]
  - DRUG WITHDRAWAL SYNDROME [None]
  - DYSPHONIA [None]
  - DYSPNOEA [None]
  - EUPHORIC MOOD [None]
  - INTENTIONAL DRUG MISUSE [None]
  - NAUSEA [None]
  - OEDEMA PERIPHERAL [None]
  - PRURITUS [None]
  - SOMNOLENCE [None]
  - SUBSTANCE ABUSE [None]
  - URINARY HESITATION [None]
  - WEIGHT INCREASED [None]
  - WHEEZING [None]
